FAERS Safety Report 7251382-7 (Version None)
Quarter: 2011Q1

REPORT INFORMATION
  Report Type: 
  Country: None (occurrence: None)
  Receive Date: 20110128
  Receipt Date: 20110124
  Transmission Date: 20110831
  Serious: Yes (Other)
  Sender: FDA-Public Use
  Company Number: IT-PFIZER INC-2011017259

PATIENT
  Age: 71 Year
  Sex: Male

DRUGS (3)
  1. RENAGEL [Concomitant]
     Dosage: 800 MG, UNK
     Route: 048
  2. SUTENT [Suspect]
     Indication: RENAL CELL CARCINOMA
     Dosage: 50 MG, 1X/DAY
     Route: 048
     Dates: start: 20090422, end: 20090521
  3. PERIPLUM [Concomitant]
     Dosage: 15 DROPS

REACTIONS (1)
  - ARTERIOVENOUS FISTULA SITE INFECTION [None]
